FAERS Safety Report 18674628 (Version 1)
Quarter: 2020Q4

REPORT INFORMATION
  Report Type: Other
  Country: IT (occurrence: IT)
  Receive Date: 20201229
  Receipt Date: 20201229
  Transmission Date: 20210114
  Serious: Yes (Other)
  Sender: FDA-Public Use
  Company Number: IT-ROCHE-2697097

PATIENT
  Age: 41 Year
  Sex: Female

DRUGS (1)
  1. OCRELIZUMAB. [Suspect]
     Active Substance: OCRELIZUMAB
     Indication: MULTIPLE SCLEROSIS
     Route: 042
     Dates: start: 20190403

REACTIONS (7)
  - Headache [Recovering/Resolving]
  - Dysentery [Recovering/Resolving]
  - Asthenia [Recovering/Resolving]
  - Coronavirus infection [Recovering/Resolving]
  - Oropharyngeal pain [Recovering/Resolving]
  - Hyposmia [Recovering/Resolving]
  - Nasopharyngitis [Recovering/Resolving]

NARRATIVE: CASE EVENT DATE: 20200315
